FAERS Safety Report 8544758-9 (Version None)
Quarter: 2012Q3

REPORT INFORMATION
  Report Type: 
  Country: None (occurrence: None)
  Receive Date: 20120727
  Receipt Date: 20111201
  Transmission Date: 20120928
  Serious: No
  Sender: FDA-Public Use
  Company Number: US-ASTRAZENECA-2011SE66160

PATIENT
  Age: 39 Year
  Sex: Male

DRUGS (3)
  1. SEROQUEL XR [Suspect]
     Indication: SCHIZOPHRENIA
     Route: 048
  2. NEXIUM [Suspect]
     Route: 048
  3. SEROQUEL XR [Suspect]
     Indication: PARANOIA
     Route: 048

REACTIONS (7)
  - BIPOLAR DISORDER [None]
  - CONDITION AGGRAVATED [None]
  - SPINAL COLUMN INJURY [None]
  - ULCER [None]
  - JOINT INJURY [None]
  - SCHIZOPHRENIA [None]
  - DRUG DOSE OMISSION [None]
